FAERS Safety Report 7518714-3 (Version None)
Quarter: 2011Q2

REPORT INFORMATION
  Report Type: 
  Country: None (occurrence: None)
  Receive Date: 20110602
  Receipt Date: 20110520
  Transmission Date: 20111010
  Serious: Yes (Hospitalization, Other)
  Sender: FDA-Public Use
  Company Number: PHHY2011FR44026

PATIENT
  Age: 28 Year
  Sex: Female

DRUGS (2)
  1. ACETAMINOPHEN [Concomitant]
  2. EXTAVIA [Suspect]
     Indication: MULTIPLE SCLEROSIS
     Dates: start: 20091101

REACTIONS (6)
  - LIGAMENT INJURY [None]
  - THYROID CANCER [None]
  - OROPHARYNGEAL PAIN [None]
  - HYPERHIDROSIS [None]
  - VARICELLA [None]
  - MULTIPLE SCLEROSIS RELAPSE [None]
